FAERS Safety Report 10523298 (Version 2)
Quarter: 2014Q4

REPORT INFORMATION
  Report Type: Spontaneous
  Country: US (occurrence: US)
  Receive Date: 20141016
  Receipt Date: 20141016
  Transmission Date: 20150528
  Serious: No
  Sender: FDA-Public Use
  Company Number: US-BAYER-US-2007-006816

PATIENT
  Age: 50 Year
  Sex: Female
  Weight: 82 kg

DRUGS (1)
  1. CLIMARA PRO [Suspect]
     Active Substance: ESTRADIOL\LEVONORGESTREL
     Indication: HORMONE REPLACEMENT THERAPY
     Dosage: 0.045/0.015 MG/D, CONT
     Route: 062
     Dates: start: 20070221

REACTIONS (13)
  - Mental impairment [Not Recovered/Not Resolved]
  - Application site haemorrhage [None]
  - Tongue disorder [Not Recovered/Not Resolved]
  - Hot flush [Not Recovered/Not Resolved]
  - Motion sickness [Not Recovered/Not Resolved]
  - Nausea [Not Recovered/Not Resolved]
  - Feeling abnormal [Not Recovered/Not Resolved]
  - Application site erosion [None]
  - Product difficult to remove [None]
  - Disorientation [Not Recovered/Not Resolved]
  - Product physical issue [None]
  - Drug dose omission [None]
  - Product adhesion issue [None]

NARRATIVE: CASE EVENT DATE: 20070221
